FAERS Safety Report 25530786 (Version 2)
Quarter: 2025Q3

REPORT INFORMATION
  Report Type: Spontaneous
  Country: RU (occurrence: RU)
  Receive Date: 20250708
  Receipt Date: 20250814
  Transmission Date: 20251020
  Serious: Yes (Other)
  Sender: VERTEX
  Company Number: None

PATIENT
  Sex: Female
  Weight: 48 kg

DRUGS (1)
  1. ORKAMBI [Suspect]
     Active Substance: IVACAFTOR\LUMACAFTOR
     Indication: Cystic fibrosis
     Dosage: 2 TABLETS (100 MG LUMACAFTOR/ 125 MG IVACAFTOR), BID (2 TIMES PER DAY)
     Route: 048
     Dates: start: 20230502, end: 20230929

REACTIONS (4)
  - Asthenia [Recovering/Resolving]
  - Dyspnoea [Recovering/Resolving]
  - Abdominal pain upper [Recovering/Resolving]
  - Drug ineffective [Unknown]

NARRATIVE: CASE EVENT DATE: 20230901
